FAERS Safety Report 10400546 (Version 4)
Quarter: 2018Q1

REPORT INFORMATION
  Report Type: Spontaneous
  Country: US (occurrence: US)
  Receive Date: 20140821
  Receipt Date: 20180131
  Transmission Date: 20180508
  Serious: No
  Sender: FDA-Public Use
  Company Number: US-ASTRAZENECA-2013SE63162

PATIENT
  Age: 76 Year
  Sex: Male
  Weight: 67.1 kg

DRUGS (2)
  1. SYMBICORT [Suspect]
     Active Substance: BUDESONIDE\FORMOTEROL FUMARATE DIHYDRATE
     Indication: RESPIRATORY TRACT CONGESTION
     Dosage: 160/4.5 MCG, 2 PUFFS TWO TIMES A DAY
     Route: 055
     Dates: start: 2012
  2. SYMBICORT [Suspect]
     Active Substance: BUDESONIDE\FORMOTEROL FUMARATE DIHYDRATE
     Indication: RESPIRATORY TRACT CONGESTION
     Dosage: 160/4.5 MCG ONE PUFF AT NIGHT
     Route: 055

REACTIONS (12)
  - Memory impairment [Not Recovered/Not Resolved]
  - Hypersensitivity [Not Recovered/Not Resolved]
  - Intentional product misuse [Unknown]
  - Upper-airway cough syndrome [Unknown]
  - Device failure [Unknown]
  - Wrong technique in product usage process [Unknown]
  - Lower respiratory tract congestion [Unknown]
  - Body height decreased [Not Recovered/Not Resolved]
  - Dry mouth [Unknown]
  - Off label use [Not Recovered/Not Resolved]
  - Wheezing [Unknown]
  - Product use in unapproved indication [Unknown]

NARRATIVE: CASE EVENT DATE: 2012
